FAERS Safety Report 6566079-6 (Version None)
Quarter: 2010Q2

REPORT INFORMATION
  Report Type: 
  Country: None (occurrence: None)
  Receive Date: 20100202
  Receipt Date: 20100125
  Transmission Date: 20101027
  Serious: Yes (Other)
  Sender: FDA-Public Use
  Company Number: US-RB-001677-10

PATIENT
  Age: 16 Year
  Sex: Male

DRUGS (1)
  1. DELSYM [Suspect]
     Dosage: INGESTED HALF OF A FIVE OUNCE CONTAINER
     Route: 048
     Dates: start: 20100122

REACTIONS (2)
  - INTENTIONAL OVERDOSE [None]
  - SWELLING FACE [None]
